FAERS Safety Report 4352584-X (Version None)
Quarter: 2004Q2

REPORT INFORMATION
  Report Type: 
  Country: None (occurrence: None)
  Receive Date: 20040504
  Receipt Date: 20040423
  Transmission Date: 20050107
  Serious: Yes (Life-Threatening)
  Sender: FDA-Public Use
  Company Number: NL-JNJFOC-20040301068

PATIENT
  Sex: Female

DRUGS (10)
  1. CORDIUM [Suspect]
     Indication: CARDIAC FAILURE
     Route: 049
  2. PILSICAINIDE HYDROCHLORIDE [Suspect]
     Indication: CARDIAC FAILURE
  3. AMLODIPINE BESYLATE [Concomitant]
     Route: 049
  4. VOGLIBOSE [Concomitant]
     Dosage: 900 UG
     Route: 049
  5. CARVEDILOL [Concomitant]
     Route: 049
  6. FUROSEMIDE [Concomitant]
  7. GLICLAZIDE [Concomitant]
     Route: 049
  8. WARFARIN SODIUM [Concomitant]
     Route: 049
  9. SPIRONOLACTONE [Concomitant]
     Route: 049
  10. ETHYL LOFLAZEPATE [Concomitant]

REACTIONS (3)
  - BLOOD PRESSURE INCREASED [None]
  - CARDIO-RESPIRATORY ARREST [None]
  - DRUG EFFECT DECREASED [None]
